FAERS Safety Report 23777012 (Version 1)
Quarter: 2024Q2

REPORT INFORMATION
  Report Type: Spontaneous
  Country: US (occurrence: US)
  Receive Date: 20240424
  Receipt Date: 20240424
  Transmission Date: 20240716
  Serious: Yes (Hospitalization)
  Sender: FDA-Public Use
  Company Number: US-AMGEN-USASP2024079133

PATIENT
  Age: 71 Year
  Sex: Male

DRUGS (18)
  1. REPATHA [Suspect]
     Active Substance: EVOLOCUMAB
     Indication: Blood cholesterol increased
     Dosage: 140 MILLIGRAM, Q2WK
     Route: 058
     Dates: start: 2021
  2. PLAVIX [Concomitant]
     Active Substance: CLOPIDOGREL BISULFATE
     Dosage: 75 MILLIGRAM, QD
  3. BERBERINE [Concomitant]
     Active Substance: BERBERINE
     Indication: Blood cholesterol abnormal
     Dosage: 200 MILLIGRAM, QD
     Dates: start: 202312
  4. ASCORBIC ACID [Concomitant]
     Active Substance: ASCORBIC ACID
     Dosage: UNK UNK, QD
  5. VITAMIN B12 [Concomitant]
     Active Substance: CYANOCOBALAMIN
     Dosage: UNK UNK, QD
  6. VITAMIN D [Concomitant]
     Active Substance: VITAMIN D NOS
  7. MAGNESIUM [Concomitant]
     Active Substance: MAGNESIUM
     Dosage: 500 MILLIGRAM, EVERY NIGHT
  8. ZINC [Concomitant]
     Active Substance: PYRITHIONE ZINC\ZINC\ZINC CHLORIDE
     Dosage: 50 MILLIGRAM, TAKES MON/WED/FRIDAY^S
  9. FISH OIL [Concomitant]
     Active Substance: FISH OIL
     Indication: Blood cholesterol abnormal
     Dosage: 1000 MILLIGRAM, BID
  10. CALCIUM [Concomitant]
     Active Substance: CALCIUM
     Dosage: 1200 MILLIGRAM
  11. LUPRON [Concomitant]
     Active Substance: LEUPROLIDE ACETATE
     Indication: Prostate cancer
     Dosage: UNK UNK, Q3MO
  12. ASPIRIN [Concomitant]
     Active Substance: ASPIRIN
     Dosage: 81 MILLIGRAM
  13. ALLOPURINOL [Concomitant]
     Active Substance: ALLOPURINOL
     Indication: Gout
     Dosage: 100 MILLIGRAM, QD
     Dates: start: 2004
  14. OLMESARTAN MEDOXOMIL [Concomitant]
     Active Substance: OLMESARTAN MEDOXOMIL
     Indication: Blood pressure abnormal
     Dosage: 10MG (20 MG PRESCRIBED), BEEN TAKING FOR 5-6 YEARS
  15. MONTELUKAST [Concomitant]
     Active Substance: MONTELUKAST SODIUM
     Indication: Allergic cough
     Dosage: 10 MILLIGRAM
     Dates: start: 2022
  16. INDOMETHACIN [Concomitant]
     Active Substance: INDOMETHACIN
     Indication: Gout
     Dosage: 50 MILLIGRAM, EVERY NIGHT AND PRN
     Dates: start: 2004
  17. ISOSORBIDE [Concomitant]
     Active Substance: ISOSORBIDE
     Dosage: UNK
     Dates: start: 2023
  18. ISOSORBIDE [Concomitant]
     Active Substance: ISOSORBIDE
     Dosage: 15 MILLIGRAM
     Dates: start: 202404

REACTIONS (7)
  - Chest pain [Not Recovered/Not Resolved]
  - Catheterisation cardiac [Not Recovered/Not Resolved]
  - Stent placement [Not Recovered/Not Resolved]
  - Therapy partial responder [Not Recovered/Not Resolved]
  - Drug dose omission by device [Unknown]
  - Device difficult to use [Unknown]
  - Device use error [Unknown]

NARRATIVE: CASE EVENT DATE: 20221001
